FAERS Safety Report 21665289 (Version 1)
Quarter: 2022Q4

REPORT INFORMATION
  Report Type: Spontaneous
  Country: CN (occurrence: CN)
  Receive Date: 20221201
  Receipt Date: 20221201
  Transmission Date: 20230113
  Serious: Yes (Other)
  Sender: FDA-Public Use
  Company Number: None

PATIENT
  Age: 56 Year
  Sex: Male
  Weight: 64 kg

DRUGS (6)
  1. CYCLOPHOSPHAMIDE [Suspect]
     Active Substance: CYCLOPHOSPHAMIDE
     Indication: Lymphocytic leukaemia
     Dosage: 3100 MG, QD, DILUTED WITH 250 ML OF 0.9% SODIUM CHLORIDE
     Route: 041
     Dates: start: 20220924, end: 20220925
  2. SODIUM CHLORIDE [Suspect]
     Active Substance: SODIUM CHLORIDE
     Indication: Medication dilution
     Dosage: 250 ML, QD, USED TO DILUTE 3100 MG CYCLOPHOSPHAMIDE
     Route: 041
     Dates: start: 20220924, end: 20220925
  3. SODIUM CHLORIDE [Suspect]
     Active Substance: SODIUM CHLORIDE
     Dosage: 250 ML, BID, USED TO DILUTE 6900 MG CYTARABINE ROUTE OF ADMINISTRATION: INTRA-PUMP INJECTION
     Route: 050
     Dates: start: 20220919, end: 20220920
  4. SODIUM CHLORIDE [Suspect]
     Active Substance: SODIUM CHLORIDE
     Dosage: 85 ML, 4 IN 1 DAY, USED TO DILUTE 51 MG BUSULFAN
     Route: 041
     Dates: start: 20220921, end: 20220924
  5. CYTARABINE [Suspect]
     Active Substance: CYTARABINE
     Indication: Lymphocytic leukaemia
     Dosage: 6900 MG, BID, DILUTED WITH 250 ML OF 0.9% SODIUM CHLORIDE, ROUTE OF ADMINISTRATION: INTRA-PUMP INJEC
     Route: 050
     Dates: start: 20220919, end: 20220920
  6. BUSULFAN [Suspect]
     Active Substance: BUSULFAN
     Indication: Lymphocytic leukaemia
     Dosage: 51 MG, 4 IN 1 DAY, DILUTED WITH 85 ML OF 0.9% SODIUM CHLORIDE
     Route: 041
     Dates: start: 20220921, end: 20220924

REACTIONS (1)
  - Myelosuppression [Recovering/Resolving]

NARRATIVE: CASE EVENT DATE: 20220926
